FAERS Safety Report 5859698-3 (Version None)
Quarter: 2008Q3

REPORT INFORMATION
  Report Type: 
  Country: None (occurrence: None)
  Receive Date: 20080818
  Receipt Date: 20080708
  Transmission Date: 20090109
  Serious: No
  Sender: FDA-Public Use
  Company Number: WAES 0807USA01393

PATIENT
  Age: 74 Year
  Sex: Male

DRUGS (5)
  1. JANUVIA [Suspect]
     Indication: BLOOD GLUCOSE
     Dosage: 25 MG/DAILY/PO
     Route: 048
     Dates: start: 20080624
  2. AVAPRO [Concomitant]
  3. DOXAZOSIN MESYLATE [Concomitant]
  4. FUROSEMIDE [Concomitant]
  5. METOPROLOL TARTRATE [Concomitant]

REACTIONS (1)
  - DYSGEUSIA [None]
